FAERS Safety Report 8728669 (Version 2)
Quarter: 2012Q4

REPORT INFORMATION
  Report Type: 
  Country: US (occurrence: US)
  Receive Date: 20120817
  Receipt Date: 20121018
  Transmission Date: 20130627
  Serious: Yes (Other)
  Sender: FDA-Public Use
  Company Number: PHEH2012US015945

PATIENT
  Sex: Female

DRUGS (3)
  1. RECLAST [Suspect]
     Route: 042
     Dates: start: 20090220
  2. ANTIHYPERTENSIVES [Concomitant]
  3. LIPID MODIFYING AGENTS [Concomitant]

REACTIONS (2)
  - Myocardial infarction [Unknown]
  - Dyspnoea [Unknown]
